APPROVED DRUG PRODUCT: DIPROSONE
Active Ingredient: BETAMETHASONE DIPROPIONATE
Strength: EQ 0.05% BASE **Federal Register determination that product was not discontinued or withdrawn for safety or effectiveness reasons**
Dosage Form/Route: LOTION;TOPICAL
Application: N017781 | Product #001
Applicant: SCHERING CORP SUB SCHERING PLOUGH CORP
Approved: Approved Prior to Jan 1, 1982 | RLD: Yes | RS: No | Type: DISCN